FAERS Safety Report 4378584-1 (Version None)
Quarter: 2004Q2

REPORT INFORMATION
  Report Type: 
  Country: None (occurrence: None)
  Receive Date: 20040609
  Receipt Date: 20040604
  Transmission Date: 20050107
  Serious: Yes (Death, Hospitalization)
  Sender: FDA-Public Use
  Company Number: TPA2004A00689

PATIENT
  Age: 72 Year
  Sex: Male

DRUGS (3)
  1. ACTOS [Suspect]
     Dosage: 30 MG, 1 IN 1 D, PER ORAL
     Route: 048
     Dates: start: 20000201
  2. LIPITOR [Suspect]
  3. CIPROFLOXACIN [Concomitant]

REACTIONS (7)
  - ALCOHOLIC LIVER DISEASE [None]
  - ASTHENIA [None]
  - COAGULOPATHY [None]
  - HEPATIC FAILURE [None]
  - LOCALISED INFECTION [None]
  - MEDICATION ERROR [None]
  - RENAL FAILURE [None]
